FAERS Safety Report 9128765 (Version 1)
Quarter: 2013Q1

REPORT INFORMATION
  Report Type: Report from Study
  Country: JP (occurrence: KR)
  Receive Date: 20130228
  Receipt Date: 20130228
  Transmission Date: 20140127
  Serious: Yes (Death)
  Sender: FDA-Public Use
  Company Number: JP-OTSUKA-US-2013-10116

PATIENT
  Age: 53 Year
  Sex: Male

DRUGS (9)
  1. BUSULFEX [Suspect]
     Indication: STEM CELL TRANSPLANT
     Dosage: UNK
     Route: 042
     Dates: start: 20120824
  2. VANCOMYCIN [Concomitant]
  3. MEROPEN [Concomitant]
  4. EPINEPHRINE [Concomitant]
  5. ATROPINE [Concomitant]
  6. CALCIUM GLUCONATE [Concomitant]
  7. ETOPOSIDE [Concomitant]
  8. CYTARABINE [Concomitant]
  9. MELPHALAN [Concomitant]

REACTIONS (5)
  - Sepsis [Fatal]
  - Headache [Fatal]
  - Productive cough [Fatal]
  - Dyspnoea [Fatal]
  - Pyrexia [Fatal]
